FAERS Safety Report 8160784-6 (Version None)
Quarter: 2012Q1

REPORT INFORMATION
  Report Type: 
  Country: None (occurrence: None)
  Receive Date: 20120223
  Receipt Date: 20120215
  Transmission Date: 20120608
  Serious: Yes (Other)
  Sender: FDA-Public Use
  Company Number: PHHY2012NL006528

PATIENT
  Sex: Male
  Weight: 75 kg

DRUGS (10)
  1. ZOMETA [Suspect]
     Dosage: 4 MG/ 100 ML ONCE PER 84 DAYS
     Dates: start: 20110927
  2. ZOMETA [Suspect]
     Indication: METASTASES TO BONE
     Dosage: 4 MG, ONCE EVERY 3 MONTHS
     Dates: start: 20110320
  3. ZOMETA [Suspect]
     Dosage: 4 MG/ 100 ML ONCE PER 84 DAYS
     Dates: start: 20110412
  4. ACETAMINOPHEN [Concomitant]
  5. METFORMIN HCL [Concomitant]
  6. PREDNISONE [Concomitant]
  7. AMITRIPTYLINE HCL [Concomitant]
  8. REFLUX [Concomitant]
  9. ESOMEPRAZOLE SODIUM [Concomitant]
  10. ZOLADEX [Concomitant]

REACTIONS (1)
  - GENERAL PHYSICAL HEALTH DETERIORATION [None]
